FAERS Safety Report 21128617 (Version 1)
Quarter: 2022Q3

REPORT INFORMATION
  Report Type: Spontaneous
  Country: US (occurrence: None)
  Receive Date: 20220725
  Receipt Date: 20220725
  Transmission Date: 20221027
  Serious: Yes (Disabling)
  Sender: FDA-Public Use
  Company Number: None

PATIENT
  Age: 56 Year
  Sex: Female
  Weight: 85.5 kg

DRUGS (6)
  1. BUPROPION HYDROCHLORIDE XL [Suspect]
     Active Substance: BUPROPION HYDROCHLORIDE
     Indication: Depression
     Dosage: OTHER QUANTITY : 1 TABLET(S);?FREQUENCY : DAILY;?
     Route: 048
  2. THYROID, PORCINE [Concomitant]
     Active Substance: THYROID, PORCINE
  3. NURTEC ODT [Concomitant]
     Active Substance: RIMEGEPANT SULFATE
  4. MOTEGRITY [Concomitant]
     Active Substance: PRUCALOPRIDE SUCCINATE
  5. MAGNESIUM [Concomitant]
     Active Substance: MAGNESIUM
  6. CALCIUM [Concomitant]
     Active Substance: CALCIUM

REACTIONS (3)
  - Product substitution issue [None]
  - Migraine [None]
  - Therapeutic product effect decreased [None]

NARRATIVE: CASE EVENT DATE: 20220725
